FAERS Safety Report 20587751 (Version 4)
Quarter: 2023Q1

REPORT INFORMATION
  Report Type: Spontaneous
  Country: AU (occurrence: AU)
  Receive Date: 20220314
  Receipt Date: 20230120
  Transmission Date: 20230418
  Serious: Yes (Hospitalization, Other)
  Sender: FDA-Public Use
  Company Number: AU-LUPIN PHARMACEUTICALS INC.-2022-03276

PATIENT
  Age: 48 Year
  Sex: Male

DRUGS (4)
  1. TRAMADOL HYDROCHLORIDE [Suspect]
     Active Substance: TRAMADOL HYDROCHLORIDE
     Indication: Neuropathy peripheral
     Dosage: 400 MG, QD, TABLET
     Route: 048
  2. TRAMADOL HYDROCHLORIDE [Suspect]
     Active Substance: TRAMADOL HYDROCHLORIDE
     Dosage: 2 GRAM, QD (2.4-3G)
     Route: 065
  3. TRAMADOL HYDROCHLORIDE [Suspect]
     Active Substance: TRAMADOL HYDROCHLORIDE
     Dosage: 800 MILLIGRAM, QD (TABLET RECEIVED A DAY BEFORE THE PRESENTATION)
     Route: 065
  4. TRAMADOL HYDROCHLORIDE [Suspect]
     Active Substance: TRAMADOL HYDROCHLORIDE
     Dosage: 400 MG, QD, TABLET (6 HOURS PRIOR TO HIS EXAMINATION)
     Route: 065

REACTIONS (7)
  - Drug dependence [Unknown]
  - Drug withdrawal syndrome [Unknown]
  - Hyperhidrosis [Recovered/Resolved]
  - Tremor [Recovered/Resolved]
  - Hypertensive crisis [Recovered/Resolved]
  - Intentional overdose [Unknown]
  - Product availability issue [Unknown]
